FAERS Safety Report 8342850-5 (Version None)
Quarter: 2012Q2

REPORT INFORMATION
  Report Type: 
  Country: None (occurrence: None)
  Receive Date: 20120508
  Receipt Date: 20120502
  Transmission Date: 20120825
  Serious: No
  Sender: FDA-Public Use
  Company Number: US-PFIZER INC-2012108341

PATIENT
  Sex: Female
  Weight: 56 kg

DRUGS (7)
  1. TENORMIN [Concomitant]
     Indication: ATRIAL TACHYCARDIA
     Dosage: 25 MG, 1X/DAY
  2. ASPIRIN [Concomitant]
     Indication: MYOCARDIAL INFARCTION
     Dosage: UNK
  3. HECTOROL [Concomitant]
     Indication: HYPERPARATHYROIDISM
     Dosage: 2.5 UG, UNK
  4. LIPITOR [Suspect]
     Indication: BLOOD CHOLESTEROL INCREASED
     Dosage: 10 MG, 1X/DAY
     Route: 048
     Dates: start: 20020101
  5. NORVASC [Concomitant]
     Indication: HYPERTENSION
     Dosage: 10 MG, 1X/DAY
  6. LISINOPRIL [Concomitant]
     Indication: HYPERTENSION
     Dosage: 20 MG, 2X/DAY
  7. PLAVIX [Concomitant]
     Indication: MYOCARDIAL INFARCTION
     Dosage: UNK

REACTIONS (1)
  - RED BLOOD CELL COUNT DECREASED [None]
